FAERS Safety Report 5069671-3 (Version None)
Quarter: 2006Q3

REPORT INFORMATION
  Report Type: 
  Country: None (occurrence: None)
  Receive Date: 20060803
  Receipt Date: 20060724
  Transmission Date: 20061208
  Serious: Yes (Death, Other)
  Sender: FDA-Public Use
  Company Number: US-AMGEN-US187631

PATIENT
  Sex: Male

DRUGS (2)
  1. ENBREL [Suspect]
     Indication: RHEUMATOID ARTHRITIS
     Dates: start: 20020601, end: 20060212
  2. METHOTREXATE [Concomitant]

REACTIONS (3)
  - DEPRESSION [None]
  - GUN SHOT WOUND [None]
  - INTENTIONAL SELF-INJURY [None]
